FAERS Safety Report 13689436 (Version 1)
Quarter: 2017Q2

REPORT INFORMATION
  Report Type: Spontaneous
  Country: US (occurrence: US)
  Receive Date: 20170625
  Receipt Date: 20170625
  Transmission Date: 20170830
  Serious: No
  Sender: FDA-Public Use
  Company Number: None

PATIENT

DRUGS (1)
  1. HETASTARCH. [Suspect]
     Active Substance: HETASTARCH
     Route: 042
     Dates: start: 20170625, end: 20170625

REACTIONS (2)
  - Product expiration date issue [None]
  - Product lot number issue [None]

NARRATIVE: CASE EVENT DATE: 20170625
